FAERS Safety Report 18972805 (Version 1)
Quarter: 2021Q1

REPORT INFORMATION
  Report Type: Spontaneous
  Country: US (occurrence: US)
  Receive Date: 20210305
  Receipt Date: 20210305
  Transmission Date: 20210420
  Serious: Yes (Other)
  Sender: FDA-Public Use
  Company Number: US-SA-2021SA073864

PATIENT
  Sex: Male

DRUGS (2)
  1. BIOFREEZE [Concomitant]
     Active Substance: MENTHOL
  2. ICY HOT LIDOCAINE DRY [Suspect]
     Active Substance: LIDOCAINE\MENTHOL
     Route: 065

REACTIONS (3)
  - Myalgia [Unknown]
  - Pain [Unknown]
  - Seizure [Unknown]
